FAERS Safety Report 8530895 (Version 4)
Quarter: 2013Q2

REPORT INFORMATION
  Report Type: Spontaneous
  Country: US (occurrence: US)
  Receive Date: 20120426
  Receipt Date: 20130418
  Transmission Date: 20140414
  Serious: Yes (Hospitalization, Other)
  Sender: FDA-Public Use
  Company Number: US-AMGEN-USASP2012024811

PATIENT
  Age: 29 Year
  Sex: Female

DRUGS (3)
  1. ENBREL [Suspect]
     Indication: PSORIATIC ARTHROPATHY
     Dosage: 50 MG, 2 TIMES/WK
     Route: 058
     Dates: start: 2006
  2. ENBREL [Suspect]
     Indication: PSORIASIS
  3. LOVENOX HP [Concomitant]
     Dosage: UNK

REACTIONS (13)
  - Premature delivery [Recovered/Resolved]
  - Coagulopathy [Recovered/Resolved]
  - Antiphospholipid antibodies [Recovered/Resolved]
  - Labour induction [Recovered/Resolved]
  - Labour complication [Unknown]
  - Toothache [Recovered/Resolved]
  - Sinusitis [Recovered/Resolved]
  - Malaise [Recovered/Resolved]
  - Migraine [Recovered/Resolved]
  - Pregnancy [Recovered/Resolved]
  - Injection site mass [Not Recovered/Not Resolved]
  - Injection site haemorrhage [Not Recovered/Not Resolved]
  - Injection site pain [Not Recovered/Not Resolved]
